FAERS Safety Report 9885786 (Version 1)
Quarter: 2013Q4

REPORT INFORMATION
  Report Type: Spontaneous
  Country: US (occurrence: None)
  Receive Date: 20131127
  Receipt Date: 20131127
  Transmission Date: 20140711
  Serious: No
  Sender: FDA-Public Use
  Company Number: 223191LEO

PATIENT
  Age: 86 Year
  Sex: Female

DRUGS (3)
  1. PICATO (INGENOL MEBUTATE) (0.015 %, GEL) [Suspect]
     Indication: PRECANCEROUS CELLS PRESENT
     Route: 061
     Dates: start: 20130810, end: 20130812
  2. CLARITIN (GLICLAZIDE) [Concomitant]
  3. VITAMINS (VITAMINS NOS) [Concomitant]

REACTIONS (7)
  - Depression [None]
  - Fatigue [None]
  - Blood pressure increased [None]
  - Application site erythema [None]
  - Application site exfoliation [None]
  - Application site swelling [None]
  - Application site pain [None]
